FAERS Safety Report 5340859-7 (Version None)
Quarter: 2007Q2

REPORT INFORMATION
  Report Type: 
  Country: None (occurrence: None)
  Receive Date: 20070405
  Receipt Date: 20061115
  Transmission Date: 20071010
  Serious: No
  Sender: FDA-Public Use
  Company Number: US200611003164

PATIENT
  Age: 25 Year
  Sex: Female

DRUGS (2)
  1. CYMBALTA [Suspect]
     Indication: BLOOD PRESSURE
     Dosage: 60 MGH, DAILY (1/D), ORAL
     Route: 048
     Dates: start: 20061107, end: 20061108
  2. DIOVAN [Concomitant]

REACTIONS (13)
  - ABASIA [None]
  - ANXIETY [None]
  - BACK CRUSHING [None]
  - BLOOD PRESSURE ABNORMAL [None]
  - BURNING SENSATION [None]
  - COMMUNICATION DISORDER [None]
  - CRYING [None]
  - DIARRHOEA [None]
  - HEADACHE [None]
  - MUSCLE TIGHTNESS [None]
  - MUSCULAR WEAKNESS [None]
  - NAUSEA [None]
  - NERVOUSNESS [None]
